FAERS Safety Report 20140934 (Version 1)
Quarter: 2021Q4

REPORT INFORMATION
  Report Type: Spontaneous
  Country: US (occurrence: US)
  Receive Date: 20211202
  Receipt Date: 20211202
  Transmission Date: 20220303
  Serious: No
  Sender: FDA-Public Use
  Company Number: US-NOVARTISTESTPH-NVSC2021US271109

PATIENT
  Age: 14 Year
  Sex: Female

DRUGS (2)
  1. CHOLESTYRAMINE [Suspect]
     Active Substance: CHOLESTYRAMINE
     Indication: Product used for unknown indication
     Dosage: 3 G (4 GM 60 PO PK)
     Route: 048
  2. VITAMIN K [Concomitant]
     Active Substance: PHYTONADIONE
     Indication: Product used for unknown indication
     Dosage: UNK
     Route: 065

REACTIONS (1)
  - Hepatic enzyme increased [Unknown]
